FAERS Safety Report 6551163-3 (Version None)
Quarter: 2010Q1

REPORT INFORMATION
  Report Type: 
  Country: None (occurrence: None)
  Receive Date: 20100121
  Receipt Date: 20090812
  Transmission Date: 20100710
  Serious: Yes (Hospitalization)
  Sender: FDA-Public Use
  Company Number: 220003N08DEU

PATIENT
  Age: 17 Year
  Sex: Female
  Weight: 59 kg

DRUGS (2)
  1. SAIZEN [Suspect]
     Indication: GROWTH HORMONE DEFICIENCY
     Dosage: 3.5 MG, 1 IN 1 DAYS,
     Dates: start: 20070205, end: 20070831
  2. ENANTHONE [ENANTONE] (LEUPRORELIN ACETATE) [Concomitant]

REACTIONS (4)
  - DEPRESSION [None]
  - EPIPHYSES PREMATURE FUSION [None]
  - INSULIN-LIKE GROWTH FACTOR INCREASED [None]
  - SUICIDAL IDEATION [None]
